FAERS Safety Report 12139698 (Version 1)
Quarter: 2016Q1

REPORT INFORMATION
  Report Type: Report from Study
  Country: GB (occurrence: GB)
  Receive Date: 20160303
  Receipt Date: 20160303
  Transmission Date: 20160526
  Serious: Yes (Other)
  Sender: FDA-Public Use
  Company Number: GB-ROCHE-1717862

PATIENT
  Age: 82 Year
  Sex: Female

DRUGS (14)
  1. TRASTUZUMAB [Suspect]
     Active Substance: TRASTUZUMAB
     Dosage: MAINTENANCE DOSE
     Route: 042
     Dates: end: 20150811
  2. DOCETAXEL. [Suspect]
     Active Substance: DOCETAXEL
     Indication: HER-2 POSITIVE BREAST CANCER
     Route: 042
     Dates: start: 20141002, end: 20150202
  3. DEXAMETHASONE. [Concomitant]
     Active Substance: DEXAMETHASONE
     Route: 042
     Dates: start: 20141001, end: 20150120
  4. HYLO-FORTE [Concomitant]
     Indication: DRY EYE
     Route: 047
     Dates: start: 20151124
  5. PERTUZUMAB [Suspect]
     Active Substance: PERTUZUMAB
     Dosage: MAINTAINENCE DOSE
     Route: 042
     Dates: end: 20150730
  6. TRASTUZUMAB [Suspect]
     Active Substance: TRASTUZUMAB
     Indication: HER-2 POSITIVE BREAST CANCER
     Dosage: LOADING DOSE
     Route: 042
     Dates: start: 20141001
  7. OMEPRAZOLE. [Concomitant]
     Active Substance: OMEPRAZOLE
     Route: 048
     Dates: start: 20151117
  8. CHLORAMPHENICOL [Concomitant]
     Active Substance: CHLORAMPHENICOL
     Indication: CONJUNCTIVITIS
     Route: 061
     Dates: start: 20151117
  9. HYLO TEAR [Concomitant]
     Indication: DRY EYE
     Route: 061
     Dates: start: 20151117
  10. MAXITROL [Concomitant]
     Active Substance: DEXAMETHASONE\NEOMYCIN SULFATE\POLYMYXIN B SULFATE
     Indication: CONJUNCTIVITIS
     Route: 047
     Dates: start: 20151124, end: 20151208
  11. TRASTUZUMAB EMTANSINE [Suspect]
     Active Substance: ADO-TRASTUZUMAB EMTANSINE
     Indication: HER-2 POSITIVE BREAST CANCER
     Dosage: 3 CYCLES
     Route: 042
     Dates: start: 20150820
  12. PERTUZUMAB [Suspect]
     Active Substance: PERTUZUMAB
     Indication: HER-2 POSITIVE BREAST CANCER
     Dosage: LOADING DOSE
     Route: 042
     Dates: start: 20141001
  13. NITROFURANTOIN. [Concomitant]
     Active Substance: NITROFURANTOIN
     Indication: CYSTITIS
     Route: 048
     Dates: start: 20151213, end: 20151220
  14. AUGMENTIN [Concomitant]
     Active Substance: AMOXICILLIN\CLAVULANATE POTASSIUM
     Indication: CONJUNCTIVITIS
     Route: 048
     Dates: start: 20151117, end: 20151123

REACTIONS (1)
  - Acute kidney injury [Recovered/Resolved]

NARRATIVE: CASE EVENT DATE: 20160218
